FAERS Safety Report 14826447 (Version 2)
Quarter: 2018Q2

REPORT INFORMATION
  Report Type: Spontaneous
  Country: DE (occurrence: DE)
  Receive Date: 20180430
  Receipt Date: 20180502
  Transmission Date: 20180711
  Serious: Yes (Hospitalization)
  Sender: FDA-Public Use
  Company Number: DE-ALLERGAN-1823146US

PATIENT
  Age: 85 Year
  Sex: Female

DRUGS (8)
  1. LORAZEPAM. [Concomitant]
     Active Substance: LORAZEPAM
     Dosage: 0.5 MG, PRN (BEDARF)
     Route: 065
  2. INSUMAN COMB [Concomitant]
     Active Substance: INSULIN HUMAN
     Dosage: NK IE/ML, 0-0-0-1
     Route: 065
  3. ZOPICLON [Concomitant]
     Active Substance: ZOPICLONE
     Dosage: 75 MG, QD (0-0-0-1)
     Route: 065
  4. CITALOPRAM HYDROBROMIDE - BP [Suspect]
     Active Substance: CITALOPRAM HYDROBROMIDE
     Indication: PRODUCT USED FOR UNKNOWN INDICATION
     Dosage: 30 MG, QAM (1-0-0-0)
     Route: 065
  5. PIPAMPERON [Concomitant]
     Active Substance: PIPAMPERONE HYDROCHLORIDE
     Dosage: 40 MG, QD (0-0-0-0.5)
     Route: 065
  6. METOPROLOL. [Concomitant]
     Active Substance: METOPROLOL
     Dosage: 47.5 MG, QAM (1-0-0-0)
     Route: 065
  7. TORASEMID [Concomitant]
     Active Substance: TORSEMIDE
     Dosage: 10 MG, QAM (1-0-0-0)
     Route: 065
  8. PANZYTRAT [Concomitant]
     Dosage: 40.000 IE (1-1-1-0)
     Route: 065

REACTIONS (3)
  - Dehydration [Unknown]
  - Medication error [Unknown]
  - Haematemesis [Unknown]
